FAERS Safety Report 4354294-1 (Version None)
Quarter: 2004Q2

REPORT INFORMATION
  Report Type: 
  Country: None (occurrence: None)
  Receive Date: 20040503
  Receipt Date: 20030619
  Transmission Date: 20050107
  Serious: Yes (Other)
  Sender: FDA-Public Use
  Company Number: PHEH2003US05154

PATIENT
  Age: 66 Year
  Sex: Female
  Weight: 75.3 kg

DRUGS (1)
  1. DIOVAN HCT [Suspect]
     Dosage: ONE TABLET DAILY, ORAL
     Route: 048
     Dates: start: 20030604

REACTIONS (4)
  - BLOOD PRESSURE INCREASED [None]
  - DIZZINESS [None]
  - DYSPNOEA [None]
  - PALPITATIONS [None]
